FAERS Safety Report 20531374 (Version 1)
Quarter: 2022Q1

REPORT INFORMATION
  Report Type: Spontaneous
  Country: US (occurrence: None)
  Receive Date: 20220228
  Receipt Date: 20220228
  Transmission Date: 20220423
  Serious: Yes (Life-Threatening, Hospitalization)
  Sender: FDA-Public Use
  Company Number: None

PATIENT
  Age: 87 Year
  Sex: Female

DRUGS (3)
  1. GAMMAKED [Suspect]
     Active Substance: HUMAN IMMUNOGLOBULIN G
     Indication: Chronic inflammatory demyelinating polyradiculoneuropathy
     Dosage: OTHER FREQUENCY : LOADING DOSE;?
     Route: 042
     Dates: start: 20220225, end: 20220226
  2. GammaKED (K08F011773) [Concomitant]
  3. GammaKED (K08F011323) [Concomitant]

REACTIONS (3)
  - Hypertension [None]
  - Grip strength decreased [None]
  - Transient ischaemic attack [None]

NARRATIVE: CASE EVENT DATE: 20220226
